FAERS Safety Report 7206709-9 (Version None)
Quarter: 2010Q4

REPORT INFORMATION
  Report Type: 
  Country: None (occurrence: None)
  Receive Date: 20101221
  Receipt Date: 20101206
  Transmission Date: 20110411
  Serious: Yes (Hospitalization)
  Sender: FDA-Public Use
  Company Number: 1000017757

PATIENT
  Age: 7 Day
  Sex: Male
  Weight: 1.713 kg

DRUGS (1)
  1. CITALOPRAM (CITALOPRAM HYDROBROMIDE) (TABLETS) [Suspect]
     Dosage: (20 MG, 1 IN 1 D, TRANSPLACENTAL) (20 MG, 1 IN 1 D, TRANSMAMMARY)
     Dates: start: 20101020

REACTIONS (4)
  - DRUG EXPOSURE DURING PREGNANCY [None]
  - DRUG EXPOSURE VIA BREAST MILK [None]
  - JAUNDICE NEONATAL [None]
  - PREMATURE BABY [None]
